FAERS Safety Report 19709995 (Version 4)
Quarter: 2021Q4

REPORT INFORMATION
  Report Type: Report from Study
  Country: PL (occurrence: PL)
  Receive Date: 20210816
  Receipt Date: 20211027
  Transmission Date: 20220304
  Serious: Yes (Death, Hospitalization)
  Sender: FDA-Public Use
  Company Number: PL-EISAI MEDICAL RESEARCH-EC-2021-097881

PATIENT
  Age: 71 Year
  Sex: Male
  Weight: 87 kg

DRUGS (7)
  1. LENVATINIB [Suspect]
     Active Substance: LENVATINIB
     Indication: Renal cancer metastatic
     Route: 048
     Dates: start: 20210528, end: 20210808
  2. PEMBROLIZUMAB [Suspect]
     Active Substance: PEMBROLIZUMAB
     Indication: Renal cancer metastatic
     Route: 041
     Dates: start: 20210528, end: 20210528
  3. PEMBROLIZUMAB [Suspect]
     Active Substance: PEMBROLIZUMAB
     Route: 041
     Dates: start: 20210709, end: 20210709
  4. TORSEMIDE [Concomitant]
     Active Substance: TORSEMIDE
     Dates: start: 201601
  5. PAROXETINE [Concomitant]
     Active Substance: PAROXETINE
     Dates: start: 201601
  6. RAMIPRIL [Concomitant]
     Active Substance: RAMIPRIL
     Dates: start: 201601
  7. BISOPROLOL [Concomitant]
     Active Substance: BISOPROLOL
     Dates: start: 201601

REACTIONS (1)
  - Pyrexia [Not Recovered/Not Resolved]

NARRATIVE: CASE EVENT DATE: 20210809
